FAERS Safety Report 7446158-1 (Version None)
Quarter: 2011Q2

REPORT INFORMATION
  Report Type: 
  Country: None (occurrence: None)
  Receive Date: 20110429
  Receipt Date: 20110422
  Transmission Date: 20111010
  Serious: Yes (Hospitalization)
  Sender: FDA-Public Use
  Company Number: B0715293A

PATIENT
  Sex: Male
  Weight: 57 kg

DRUGS (15)
  1. ZOVIRAX [Concomitant]
     Dosage: 1000MG PER DAY
     Route: 048
     Dates: end: 20070412
  2. OMEPRAL [Concomitant]
     Dosage: 1IUAX PER DAY
     Route: 042
     Dates: start: 20070311, end: 20070418
  3. TACROLIMUS HYDRATE [Concomitant]
     Dosage: 3MG PER DAY
     Route: 048
     Dates: start: 20070417
  4. CIPROXAN [Concomitant]
     Dosage: 600MG PER DAY
     Route: 048
     Dates: end: 20070316
  5. PRIMPERAN TAB [Concomitant]
     Dosage: 1IUAX PER DAY
     Dates: start: 20070310, end: 20070310
  6. UNKNOWN DRUG [Concomitant]
     Route: 065
     Dates: start: 20070318, end: 20070324
  7. TAKEPRON [Concomitant]
     Dosage: 15MG PER DAY
     Route: 048
     Dates: end: 20070510
  8. ALKERAN [Suspect]
     Indication: ALLOGENIC BONE MARROW TRANSPLANTATION THERAPY
     Dosage: 114MG PER DAY
     Route: 042
     Dates: start: 20070310, end: 20070311
  9. ATARAX [Concomitant]
     Dates: start: 20070311, end: 20070311
  10. TACROLIMUS HYDRATE [Concomitant]
     Indication: IMMUNOSUPPRESSION
     Dosage: 2MG PER DAY
     Dates: start: 20070312, end: 20070416
  11. METHOTREXATE [Concomitant]
     Indication: IMMUNOSUPPRESSION
     Dosage: 10MGM2 PER DAY
     Route: 065
     Dates: start: 20070314, end: 20070325
  12. FLUDARA [Suspect]
     Indication: ALLOGENIC BONE MARROW TRANSPLANTATION THERAPY
     Dosage: 41MG PER DAY
     Route: 042
     Dates: start: 20070305, end: 20070309
  13. URSO 250 [Concomitant]
     Dosage: 600MG PER DAY
     Route: 048
     Dates: end: 20070510
  14. KYTRIL [Concomitant]
     Dosage: 3MG PER DAY
     Dates: end: 20070311
  15. NEOPHAGEN C [Concomitant]
     Dosage: 2IUAX PER DAY
     Route: 042
     Dates: start: 20070310, end: 20070329

REACTIONS (2)
  - ALANINE AMINOTRANSFERASE INCREASED [None]
  - FEBRILE NEUTROPENIA [None]
